FAERS Safety Report 8055876-6 (Version None)
Quarter: 2012Q1

REPORT INFORMATION
  Report Type: 
  Country: None (occurrence: None)
  Receive Date: 20120119
  Receipt Date: 20120119
  Transmission Date: 20120608
  Serious: Yes (Life-Threatening)
  Sender: FDA-Public Use
  Company Number: None

PATIENT
  Age: 45 Year
  Sex: Female
  Weight: 127 kg

DRUGS (1)
  1. ESTRADERM [Suspect]
     Dosage: 0.1MG
     Route: 062

REACTIONS (1)
  - PULMONARY EMBOLISM [None]
